FAERS Safety Report 18729309 (Version 1)
Quarter: 2021Q1

REPORT INFORMATION
  Report Type: Spontaneous
  Country: US (occurrence: US)
  Receive Date: 20210112
  Receipt Date: 20210112
  Transmission Date: 20210419
  Serious: Yes (Death)
  Sender: FDA-Public Use
  Company Number: US-FRESENIUS MEDICAL CARE RENAL THERAPIES GROUP-FMC-2101-000031

PATIENT
  Age: 79 Year
  Sex: Male
  Weight: 109 kg

DRUGS (3)
  1. DELFLEX WITH DEXTROSE 2.5% LOW MAGNESIUM LOW CALCIUM [Suspect]
     Active Substance: CALCIUM CHLORIDE\DEXTROSE\MAGNESIUM CHLORIDE\SODIUM CHLORIDE\SODIUM LACTATE
     Indication: END STAGE RENAL DISEASE
     Dosage: EXCHANGES 4, DWELL VOLUME 3000 ML, DWELL TIME 2 HOURS, LAST FILL 2500 ML, DAYTIME EXCHANGES 2, DWELL
     Route: 033
  2. DELFLEX WITH DEXTROSE 4.25% LOW MAGNESIUM LOW CALCIUM [Suspect]
     Active Substance: CALCIUM CHLORIDE\DEXTROSE\MAGNESIUM CHLORIDE\SODIUM CHLORIDE\SODIUM LACTATE
     Indication: END STAGE RENAL DISEASE
     Dosage: EXCHANGES 4, DWELL VOLUME 3000 ML, DWELL TIME 2 HOURS, LAST FILL 2500 ML, DAYTIME EXCHANGES 2, DWELL
     Route: 033
  3. DELFLEX WITH DEXTROSE 1.5% LOW MAGNESIUM LOW CALCIUM [Suspect]
     Active Substance: CALCIUM CHLORIDE\DEXTROSE\MAGNESIUM CHLORIDE\SODIUM CHLORIDE\SODIUM LACTATE
     Indication: END STAGE RENAL DISEASE
     Dosage: EXCHANGES 4, DWELL VOLUME 3000 ML, DWELL TIME 2 HOURS, LAST FILL 2500 ML, DAYTIME EXCHANGES 2, DWELL
     Route: 033

REACTIONS (1)
  - Cardiac arrest [Fatal]
